FAERS Safety Report 4724664-8 (Version None)
Quarter: 2005Q3

REPORT INFORMATION
  Report Type: 
  Country: None (occurrence: None)
  Receive Date: 20050719
  Receipt Date: 20050719
  Transmission Date: 20060218
  Serious: Yes (Death, Hospitalization)
  Sender: FDA-Public Use
  Company Number: None

PATIENT
  Sex: Male

DRUGS (2)
  1. TAXOTERE [Suspect]
     Indication: NEUROENDOCRINE CARCINOMA OF THE SKIN
     Dosage: 35 MG/M2
     Dates: start: 20050614, end: 20050614
  2. DOXIL [Suspect]
     Dosage: 20 MG/M2 BASED ON 5/23.

REACTIONS (14)
  - ABDOMINAL DISTENSION [None]
  - ANAEMIA [None]
  - ASTHENIA [None]
  - DEHYDRATION [None]
  - DYSPNOEA [None]
  - DYSSTASIA [None]
  - FATIGUE [None]
  - FEEDING TUBE COMPLICATION [None]
  - INTESTINAL OBSTRUCTION [None]
  - LETHARGY [None]
  - MALAISE [None]
  - MUSCULAR WEAKNESS [None]
  - PULMONARY OEDEMA [None]
  - VOMITING [None]
